FAERS Safety Report 7675187-8 (Version None)
Quarter: 2011Q3

REPORT INFORMATION
  Report Type: 
  Country: None (occurrence: None)
  Receive Date: 20110810
  Receipt Date: 20110810
  Transmission Date: 20111222
  Serious: Yes (Hospitalization)
  Sender: FDA-Public Use
  Company Number: None

PATIENT
  Sex: Female
  Weight: 4.1 kg

DRUGS (19)
  1. BUMEX [Concomitant]
  2. VITAMIN K TAB [Concomitant]
  3. DOPAMINE HCL [Concomitant]
  4. MILRINONE [Concomitant]
  5. TPN [Concomitant]
  6. CEFEPIME [Concomitant]
  7. FLUCONAZOLE [Concomitant]
  8. ZANTAC [Concomitant]
  9. FENTANYL [Concomitant]
  10. NITROGLYCERIN [Concomitant]
  11. LINEZOLID [Suspect]
     Indication: ENDOCARDITIS
     Dosage: 40 MG
     Route: 041
     Dates: start: 20110701, end: 20110802
  12. POTASSIUM CHLORIDE [Concomitant]
  13. SODIUM BICARBONATE [Concomitant]
  14. GENTAMICIN [Concomitant]
  15. NYSTATIN [Concomitant]
  16. CALCIUM CARBONATE [Concomitant]
  17. ALBUMIN (HUMAN) [Concomitant]
  18. NYSTATIN [Concomitant]
  19. LASIX [Concomitant]

REACTIONS (2)
  - THROMBOCYTOPENIA [None]
  - LACTIC ACIDOSIS [None]
